FAERS Safety Report 22343460 (Version 1)
Quarter: 2023Q2

REPORT INFORMATION
  Report Type: Spontaneous
  Country: US (occurrence: US)
  Receive Date: 20230519
  Receipt Date: 20230519
  Transmission Date: 20230722
  Serious: Yes (Other)
  Sender: FDA-Public Use
  Company Number: US-SA-SAC20230518000703

PATIENT
  Age: 15 Year
  Sex: Male

DRUGS (4)
  1. ALPROLIX [Suspect]
     Active Substance: EFTRENONACOG ALFA
     Dosage: INFUSE 3300/7100 UNITS (+/- 10%) ONCE WEEKLY FOR PROPHYLACTICALLY
     Route: 042
  2. ALPROLIX [Suspect]
     Active Substance: EFTRENONACOG ALFA
     Dosage: INFUSE 3300/7100 UNITS (+/- 10%) ONCE WEEKLY FOR PROPHYLACTICALLY
     Route: 042
  3. ALPROLIX [Suspect]
     Active Substance: EFTRENONACOG ALFA
     Dosage: INFUSE 3300/7100 UNITS (+/- 10%) ONCE WEEKLY FOR PROPHYLACTICALLY
     Route: 042
  4. ALPROLIX [Suspect]
     Active Substance: EFTRENONACOG ALFA
     Dosage: INFUSE 3300/7100 UNITS (+/- 10%) ONCE WEEKLY FOR PROPHYLACTICALLY
     Route: 042

REACTIONS (3)
  - Haemorrhage [Recovered/Resolved]
  - Fall [Unknown]
  - Limb injury [Unknown]

NARRATIVE: CASE EVENT DATE: 20230501
